FAERS Safety Report 24768880 (Version 2)
Quarter: 2024Q4

REPORT INFORMATION
  Report Type: Report from Study
  Country: US (occurrence: US)
  Receive Date: 20241224
  Receipt Date: 20241227
  Transmission Date: 20250115
  Serious: Yes (Other)
  Sender: ASTELLAS
  Company Number: US-ASTELLAS-2022US043258

PATIENT
  Sex: Male

DRUGS (5)
  1. ENZALUTAMIDE [Suspect]
     Active Substance: ENZALUTAMIDE
     Indication: Product used for unknown indication
     Dosage: 160 MG, UNKNOWN FREQ.
     Route: 065
     Dates: start: 20220207
  2. ENZALUTAMIDE [Suspect]
     Active Substance: ENZALUTAMIDE
     Dosage: 80 MG, UNKNOWN FREQ.
     Route: 065
     Dates: start: 20221205
  3. ENZALUTAMIDE [Suspect]
     Active Substance: ENZALUTAMIDE
     Dosage: 80 MG, ONCE DAILY
     Route: 065
     Dates: start: 20240101
  4. ENZALUTAMIDE [Suspect]
     Active Substance: ENZALUTAMIDE
     Route: 065
     Dates: start: 20241202
  5. ENZALUTAMIDE [Suspect]
     Active Substance: ENZALUTAMIDE
     Route: 065
     Dates: end: 20230102

REACTIONS (1)
  - Seizure [Unknown]
